FAERS Safety Report 23431866 (Version 6)
Quarter: 2024Q1

REPORT INFORMATION
  Report Type: Spontaneous
  Country: TW (occurrence: TW)
  Receive Date: 20240123
  Receipt Date: 20240321
  Transmission Date: 20240409
  Serious: Yes (Hospitalization, Other)
  Sender: FDA-Public Use
  Company Number: TW-SANOFI-01910146

PATIENT
  Age: 75 Year
  Sex: Male

DRUGS (2)
  1. RENVELA [Suspect]
     Active Substance: SEVELAMER CARBONATE
     Indication: Blood phosphorus increased
     Dosage: 1 DF
     Route: 048
     Dates: start: 20240112, end: 202401
  2. RENVELA [Suspect]
     Active Substance: SEVELAMER CARBONATE
     Dosage: 2 DF
     Route: 048
     Dates: start: 20240115, end: 202401

REACTIONS (9)
  - Choking [Recovered/Resolved]
  - Pyrexia [Recovered/Resolved]
  - Abdominal distension [Recovered/Resolved]
  - Abdominal pain [Recovered/Resolved]
  - Vomiting [Recovered/Resolved]
  - Wrong technique in product usage process [Recovered/Resolved]
  - Haematuria [Not Recovered/Not Resolved]
  - Abdominal discomfort [Unknown]
  - Constipation [Not Recovered/Not Resolved]

NARRATIVE: CASE EVENT DATE: 20240101
